FAERS Safety Report 9412122 (Version 4)
Quarter: 2013Q3

REPORT INFORMATION
  Report Type: Spontaneous
  Country: US (occurrence: None)
  Receive Date: 20130416
  Receipt Date: 20130830
  Transmission Date: 20140515
  Serious: Yes (Other)
  Sender: FDA-Public Use
  Company Number: ADR-2013-00626

PATIENT
  Age: 51 Year
  Sex: Female

DRUGS (1)
  1. BACLOFEN [Suspect]
     Indication: PAIN

REACTIONS (7)
  - Device failure [None]
  - Malaise [None]
  - Nasopharyngitis [None]
  - Muscle spasticity [None]
  - Device power source issue [None]
  - Device physical property issue [None]
  - Device deposit issue [None]
